FAERS Safety Report 6887707-1 (Version None)
Quarter: 2010Q3

REPORT INFORMATION
  Report Type: 
  Country: None (occurrence: None)
  Receive Date: 20100730
  Receipt Date: 20100727
  Transmission Date: 20110219
  Serious: Yes (Hospitalization)
  Sender: FDA-Public Use
  Company Number: US-WYE-H15926610

PATIENT
  Sex: Male
  Weight: 114.2 kg

DRUGS (15)
  1. TEMSIROLIMUS [Suspect]
     Indication: PROSTATE CANCER
     Route: 042
     Dates: start: 20100609, end: 20100617
  2. OMEPRAZOLE [Concomitant]
  3. LUPRON [Concomitant]
     Dosage: INJECTIONS EVERY THREE MONTHS
  4. MULTIVIT [Concomitant]
  5. TUMS [Concomitant]
  6. FLOMAX [Concomitant]
  7. CELEBREX [Concomitant]
     Dosage: 200 MG 1-3 TABS DAILY
  8. FLONASE [Concomitant]
     Dosage: 50 MCQ/ACTUATION NASAL SPRAY ONE SPRAY EACH NOSTRIL DAILY AS NEEDED
     Route: 045
  9. ADVAIR DISKUS 100/50 [Concomitant]
     Dosage: 500MCG/50MCG ONCE DAILY
  10. ALBUTEROL [Concomitant]
     Dosage: 90 MCQ/ACTUATION AEROSOL INHALER - AS NEEDED
  11. COMPAZINE [Concomitant]
     Dosage: 10MG TABLET EVERY 6 HOURS AS NEEDED
  12. NYSTATIN [Concomitant]
     Dosage: 100,000 UNIT/ML ORAL SUSP AS NEEDED
     Route: 048
  13. OXYCONTIN [Concomitant]
     Dosage: 20MG 12HR TAB, 1 TAB TID
  14. PERCOCET [Concomitant]
     Dosage: 10MG/325MG 1 TABLET EVERY 6 HOURS AS NEEDED
  15. AVASTIN [Suspect]
     Indication: PROSTATE CANCER
     Route: 042
     Dates: start: 20100617

REACTIONS (12)
  - ACTIVITIES OF DAILY LIVING IMPAIRED [None]
  - BACK PAIN [None]
  - CONDITION AGGRAVATED [None]
  - DECREASED APPETITE [None]
  - FATIGUE [None]
  - GAIT DISTURBANCE [None]
  - MUSCULAR WEAKNESS [None]
  - NAUSEA [None]
  - PAIN IN EXTREMITY [None]
  - PNEUMONIA [None]
  - VISION BLURRED [None]
  - VOMITING [None]
